FAERS Safety Report 5874163-5 (Version None)
Quarter: 2008Q3

REPORT INFORMATION
  Report Type: 
  Country: None (occurrence: None)
  Receive Date: 20080905
  Receipt Date: 20080905
  Transmission Date: 20090109
  Serious: Yes (Other)
  Sender: FDA-Public Use
  Company Number: None

PATIENT
  Age: 54 Year
  Sex: Female
  Weight: 87.0906 kg

DRUGS (2)
  1. XYZAL [Suspect]
     Indication: HYPERSENSITIVITY
     Dosage: 5 MG ONCE DAILY PO
     Route: 048
     Dates: start: 20080701, end: 20080827
  2. XYZAL [Suspect]
     Indication: URTICARIA
     Dosage: 5 MG ONCE DAILY PO
     Route: 048
     Dates: start: 20080701, end: 20080827

REACTIONS (8)
  - ARTHRALGIA [None]
  - ARTHROPATHY [None]
  - BURSITIS [None]
  - GAIT DISTURBANCE [None]
  - JOINT EFFUSION [None]
  - JOINT SWELLING [None]
  - MUSCLE SPASMS [None]
  - MYALGIA [None]
